FAERS Safety Report 5752331-0 (Version None)
Quarter: 2008Q2

REPORT INFORMATION
  Report Type: 
  Country: None (occurrence: None)
  Receive Date: 20080529
  Receipt Date: 20080520
  Transmission Date: 20081010
  Serious: Yes (Hospitalization)
  Sender: FDA-Public Use
  Company Number: IT-TEVA-171927ISR

PATIENT
  Sex: Male

DRUGS (5)
  1. FLUOROURACIL [Suspect]
     Indication: GASTRIC CANCER
     Route: 042
  2. FOLINIC ACID [Suspect]
     Indication: GASTRIC CANCER
     Route: 042
  3. CISPLATIN [Suspect]
     Indication: GASTRIC CANCER
     Route: 042
  4. IRINOTECAN HCL [Suspect]
     Indication: GASTRIC CANCER
     Route: 042
  5. DOCETAXEL [Suspect]
     Indication: GASTRIC CANCER
     Route: 042

REACTIONS (1)
  - INTESTINAL OBSTRUCTION [None]
